FAERS Safety Report 7377639-7 (Version None)
Quarter: 2011Q1

REPORT INFORMATION
  Report Type: 
  Country: None (occurrence: None)
  Receive Date: 20110316
  Receipt Date: 20110309
  Transmission Date: 20110831
  Serious: Yes (Other)
  Sender: FDA-Public Use
  Company Number: DSA_45168_2011

PATIENT
  Sex: Male

DRUGS (1)
  1. XENAZINE [Suspect]
     Indication: HUNTINGTON'S DISEASE
     Dosage: 25 MG TID ORAL
     Route: 048
     Dates: start: 20081216

REACTIONS (2)
  - MASTICATION DISORDER [None]
  - EXCESSIVE EYE BLINKING [None]
